FAERS Safety Report 16456154 (Version 3)
Quarter: 2019Q3

REPORT INFORMATION
  Report Type: Spontaneous
  Country: US (occurrence: US)
  Receive Date: 20190620
  Receipt Date: 20190920
  Transmission Date: 20191004
  Serious: Yes (Other)
  Sender: FDA-Public Use
  Company Number: US-ASTRAZENECA-2018SF65961

PATIENT
  Sex: Female
  Weight: 63.5 kg

DRUGS (28)
  1. PREVACID [Suspect]
     Active Substance: LANSOPRAZOLE
     Indication: CEREBROVASCULAR ACCIDENT
     Route: 065
  2. LISINOPRIL. [Suspect]
     Active Substance: LISINOPRIL
     Indication: BLOOD CHOLESTEROL
     Dosage: TWICE DAILY
     Route: 065
     Dates: start: 201811
  3. SYMBICORT [Suspect]
     Active Substance: BUDESONIDE\FORMOTEROL FUMARATE DIHYDRATE
     Route: 065
     Dates: start: 201811
  4. PRAZOSIN. [Concomitant]
     Active Substance: PRAZOSIN
     Indication: BLOOD PRESSURE ABNORMAL
     Dates: start: 2017, end: 2019
  5. PROTONIX [Suspect]
     Active Substance: PANTOPRAZOLE SODIUM
     Indication: CEREBROVASCULAR ACCIDENT
     Dosage: DAILY
     Route: 065
     Dates: start: 200705
  6. LASIX [Concomitant]
     Active Substance: FUROSEMIDE
     Dates: start: 2014
  7. AMLODIPINE BESYLATE. [Concomitant]
     Active Substance: AMLODIPINE BESYLATE
     Indication: BLOOD PRESSURE ABNORMAL
     Dates: start: 2009
  8. PROTONIX [Suspect]
     Active Substance: PANTOPRAZOLE SODIUM
     Indication: CEREBROVASCULAR ACCIDENT
     Route: 065
  9. LOSARTAN POTASSIUM. [Suspect]
     Active Substance: LOSARTAN POTASSIUM
     Indication: RENAL DISORDER
     Route: 065
  10. BENICAR [Suspect]
     Active Substance: OLMESARTAN MEDOXOMIL
     Indication: RENAL DISORDER
     Dosage: TWO TIMES DAILY
     Route: 065
     Dates: start: 201611, end: 2018
  11. PEPCID [Concomitant]
     Active Substance: FAMOTIDINE
  12. PRILOSEC [Suspect]
     Active Substance: OMEPRAZOLE MAGNESIUM
     Indication: CEREBROVASCULAR ACCIDENT
     Route: 048
  13. CLONIDINE. [Concomitant]
     Active Substance: CLONIDINE
     Indication: CARDIAC DISORDER
     Dates: start: 2015
  14. NEXIUM [Suspect]
     Active Substance: ESOMEPRAZOLE MAGNESIUM
     Indication: CEREBROVASCULAR ACCIDENT
     Dosage: TWO TIMES A DAY
     Route: 048
     Dates: start: 200705
  15. PRILOSEC [Suspect]
     Active Substance: OMEPRAZOLE MAGNESIUM
     Indication: CEREBROVASCULAR ACCIDENT
     Dosage: DAILY
     Route: 048
     Dates: start: 200705
  16. IRBESARTAN. [Suspect]
     Active Substance: IRBESARTAN
     Indication: RENAL DISORDER
     Dosage: DAILY
     Route: 065
     Dates: start: 201707, end: 2018
  17. ATORVASTATIN [Concomitant]
     Active Substance: ATORVASTATIN
     Indication: BLOOD CHOLESTEROL
     Dates: start: 2016, end: 201906
  18. ASPIRIN. [Concomitant]
     Active Substance: ASPIRIN
     Indication: CARDIAC DISORDER
  19. NEXIUM [Suspect]
     Active Substance: ESOMEPRAZOLE MAGNESIUM
     Indication: CEREBROVASCULAR ACCIDENT
     Route: 048
  20. PREVACID [Suspect]
     Active Substance: LANSOPRAZOLE
     Indication: CEREBROVASCULAR ACCIDENT
     Dosage: DAILY
     Route: 065
     Dates: start: 200705
  21. HYDRALAZINE [Concomitant]
     Active Substance: HYDRALAZINE HYDROCHLORIDE
     Indication: BLOOD PRESSURE ABNORMAL
     Dates: start: 2018
  22. METFORMIN [Concomitant]
     Active Substance: METFORMIN HYDROCHLORIDE
     Dates: start: 2014, end: 2019
  23. GABAPENTIN. [Concomitant]
     Active Substance: GABAPENTIN
     Indication: NERVE INJURY
     Dates: start: 2015, end: 2018
  24. REPAGLINIDE. [Suspect]
     Active Substance: REPAGLINIDE
     Indication: BLOOD GLUCOSE DECREASED
     Route: 065
  25. CARVEDILOL. [Concomitant]
     Active Substance: CARVEDILOL
     Indication: CARDIAC DISORDER
     Dates: start: 2007
  26. LANTUS [Concomitant]
     Active Substance: INSULIN GLARGINE
     Dates: start: 201906
  27. TERBINAFINE. [Concomitant]
     Active Substance: TERBINAFINE
     Indication: ANTIBIOTIC THERAPY
     Dates: start: 2018, end: 201906
  28. MYLANTA [Concomitant]
     Active Substance: ALUMINUM HYDROXIDE\DIMETHICONE\MAGNESIUM HYDROXIDE

REACTIONS (9)
  - Chronic kidney disease [Unknown]
  - Nephropathy [Not Recovered/Not Resolved]
  - Diabetes mellitus [Not Recovered/Not Resolved]
  - Cardiac failure [Not Recovered/Not Resolved]
  - Renal injury [Unknown]
  - Renal failure [Unknown]
  - Hypertension [Not Recovered/Not Resolved]
  - Tubulointerstitial nephritis [Unknown]
  - Rebound acid hypersecretion [Unknown]
